FAERS Safety Report 9677430 (Version 1)
Quarter: 2013Q4

REPORT INFORMATION
  Report Type: Spontaneous
  Country: US (occurrence: US)
  Receive Date: 20131108
  Receipt Date: 20131108
  Transmission Date: 20140711
  Serious: No
  Sender: FDA-Public Use
  Company Number: US-ENDO PHARMACEUTICALS INC.-PERP20120002

PATIENT
  Sex: Female

DRUGS (1)
  1. PERPHENAZINE TABLETS 8MG [Suspect]
     Indication: PRODUCT USED FOR UNKNOWN INDICATION
     Route: 048

REACTIONS (2)
  - Feeling abnormal [Unknown]
  - Drug effect decreased [Recovering/Resolving]
